FAERS Safety Report 9695438 (Version 2)
Quarter: 2013Q4

REPORT INFORMATION
  Report Type: Report from Study
  Country: IN (occurrence: IN)
  Receive Date: 20131119
  Receipt Date: 20131119
  Transmission Date: 20140711
  Serious: Yes (Other)
  Sender: FDA-Public Use
  Company Number: PHHY2012IN129588

PATIENT
  Sex: 0

DRUGS (2)
  1. GLIVEC [Suspect]
     Dosage: 400 MG, UNK
  2. GLIVEC [Suspect]
     Dosage: 600 MG, UNK

REACTIONS (3)
  - White blood cell count increased [Unknown]
  - Disease progression [Unknown]
  - Platelet count increased [Unknown]
